FAERS Safety Report 21365121 (Version 2)
Quarter: 2022Q4

REPORT INFORMATION
  Report Type: Spontaneous
  Country: US (occurrence: None)
  Receive Date: 20220922
  Receipt Date: 20221003
  Transmission Date: 20230113
  Serious: No
  Sender: FDA-Public Use
  Company Number: 2022A318740

PATIENT
  Age: 15179 Day
  Sex: Female

DRUGS (1)
  1. SYMBICORT [Suspect]
     Active Substance: BUDESONIDE\FORMOTEROL FUMARATE DIHYDRATE
     Dosage: 160/4.5 2 PUFFS, TWO TIMES A DAY
     Route: 055

REACTIONS (7)
  - Hypersensitivity [Unknown]
  - Drug dose omission by device [Not Recovered/Not Resolved]
  - Device use issue [Unknown]
  - Wrong technique in product usage process [Unknown]
  - Product use issue [Unknown]
  - Off label use [Unknown]
  - Device ineffective [Unknown]

NARRATIVE: CASE EVENT DATE: 20220910
